FAERS Safety Report 6764305-1 (Version None)
Quarter: 2010Q2

REPORT INFORMATION
  Report Type: 
  Country: None (occurrence: None)
  Receive Date: 20100608
  Receipt Date: 20100527
  Transmission Date: 20101027
  Serious: Yes (Life-Threatening)
  Sender: FDA-Public Use
  Company Number: 1000014293

PATIENT
  Age: 70 Year
  Sex: Female
  Weight: 90 kg

DRUGS (14)
  1. CITALOPRAM HYDROBROMIDE [Suspect]
     Dosage: 20 MG (20 MG, 1 IN 1 D),ORAL
     Route: 048
     Dates: start: 20070614, end: 20070616
  2. KALINOR-BRAUSETABLETTEN [Concomitant]
  3. CLEXANE [Concomitant]
  4. KONAKION [Concomitant]
  5. FUROSEMIDE [Concomitant]
  6. METOPROLOL SUCCINATE [Concomitant]
  7. AMLODIPINE [Concomitant]
  8. ENALAPRIL MALEATE [Concomitant]
  9. L-THYROX [Concomitant]
  10. ALLOPURINOL [Concomitant]
  11. ASPIRIN [Concomitant]
  12. LAIF [Concomitant]
  13. AURUM CARDIODORON COMP [Concomitant]
  14. BRYOPHYLLUM [Concomitant]

REACTIONS (3)
  - CONFUSIONAL STATE [None]
  - PSYCHOTIC DISORDER [None]
  - RESTLESSNESS [None]
